FAERS Safety Report 5159710-3 (Version None)
Quarter: 2006Q4

REPORT INFORMATION
  Report Type: 
  Country: None (occurrence: None)
  Receive Date: 20061129
  Receipt Date: 20061120
  Transmission Date: 20070319
  Serious: Yes (Other)
  Sender: FDA-Public Use
  Company Number: FR-ROCHE-472117

PATIENT
  Sex: Female

DRUGS (8)
  1. XELODA [Suspect]
     Dosage: FIRST CYCLE AT REDUCED DOSAGE. THE SECOND CYCLE WAS DONE IN THE MIDDLE OF OCTOBER 2006.
     Route: 065
     Dates: start: 20060720
  2. XELODA [Suspect]
     Route: 065
     Dates: start: 20050515, end: 20060515
  3. NAVELBINE [Suspect]
     Dosage: FIRST CYCLE AT REDUCED DOSAGE. THE SECOND CYCLE WAS DONE IN THE MIDDLE OF OCTOBER 2006.
     Route: 065
     Dates: start: 20060720
  4. NOVONORM [Suspect]
     Route: 065
     Dates: start: 19960615
  5. ZOFRAN [Concomitant]
  6. COUMADIN [Concomitant]
  7. METHOTREXATE [Concomitant]
     Dosage: NO RESPONSE.
     Dates: start: 20060715
  8. ENDOXAN [Concomitant]
     Dosage: NO RESPONSE.
     Dates: start: 20060715

REACTIONS (5)
  - BLOOD CREATININE INCREASED [None]
  - HAEMOLYTIC ANAEMIA [None]
  - PALMAR-PLANTAR ERYTHRODYSAESTHESIA SYNDROME [None]
  - RENAL FAILURE ACUTE [None]
  - THROMBOCYTOPENIA [None]
